FAERS Safety Report 4987096-3 (Version None)
Quarter: 2006Q2

REPORT INFORMATION
  Report Type: 
  Country: None (occurrence: None)
  Receive Date: 20060501
  Receipt Date: 20060420
  Transmission Date: 20061013
  Serious: Yes (Hospitalization)
  Sender: FDA-Public Use
  Company Number: CA-JNJFOC-20060404441

PATIENT
  Sex: Female

DRUGS (1)
  1. REMICADE [Suspect]
     Indication: CROHN'S DISEASE
     Dosage: 5 INFUSIONS ON UNKNOWN DATES
     Route: 042

REACTIONS (4)
  - BARTHOLIN'S CYST [None]
  - NAUSEA [None]
  - VOMITING [None]
  - WEIGHT DECREASED [None]
